FAERS Safety Report 24258365 (Version 1)
Quarter: 2024Q3

REPORT INFORMATION
  Report Type: Spontaneous
  Country: US (occurrence: US)
  Receive Date: 20240828
  Receipt Date: 20240828
  Transmission Date: 20241016
  Serious: No
  Sender: BAYER
  Company Number: US-BAYER-2024A120851

PATIENT
  Age: 28 Year
  Sex: Female
  Weight: 66.032 kg

DRUGS (17)
  1. YASMIN [Suspect]
     Active Substance: DROSPIRENONE\ETHINYL ESTRADIOL
     Indication: Contraception
     Dosage: 1 DF, QD
     Route: 048
     Dates: start: 2024
  2. YAZ [Suspect]
     Active Substance: DROSPIRENONE\ETHINYL ESTRADIOL
     Indication: Acne
     Dosage: UNK
     Route: 048
     Dates: start: 202401, end: 2024
  3. PARAGARD T 380A [Concomitant]
     Active Substance: COPPER
     Indication: Contraception
     Dosage: UNK
     Route: 015
     Dates: start: 20240701
  4. CLARITIN [Concomitant]
     Active Substance: LORATADINE
     Dosage: 1 DF, QD
     Route: 048
     Dates: start: 20240729
  5. EPINEPHRINE [Concomitant]
     Active Substance: EPINEPHRINE
     Dosage: UNK UNK, QD
     Route: 030
     Dates: start: 20210113
  6. NURTEC ODT [Concomitant]
     Active Substance: RIMEGEPANT SULFATE
     Dosage: 75 MG
     Dates: start: 20240516
  7. ADAPALENE [Concomitant]
     Active Substance: ADAPALENE
     Dosage: UNK
     Route: 061
     Dates: start: 20240201
  8. ALBUTEROL SULFATE [Concomitant]
     Active Substance: ALBUTEROL SULFATE
     Dosage: UNK
     Route: 045
     Dates: start: 20240126
  9. BENZONATATE [Concomitant]
     Active Substance: BENZONATATE
     Dosage: 100 MG
     Route: 048
     Dates: start: 20240126
  10. CLINDAMYCIN [Concomitant]
     Active Substance: CLINDAMYCIN
     Dosage: UNK
     Dates: start: 20240131
  11. IPRATROPIUM BROMIDE [Concomitant]
     Active Substance: IPRATROPIUM BROMIDE\IPRATROPIUM BROMIDE ANHYDROUS
     Dosage: 42 ?G
     Route: 045
     Dates: start: 20240126
  12. PREDNISONE [Concomitant]
     Active Substance: PREDNISONE
     Dosage: 50 MG
     Dates: start: 20240227
  13. PREDNISONE [Concomitant]
     Active Substance: PREDNISONE
     Dosage: 20 MG
     Dates: start: 20240401
  14. SYEDA [Concomitant]
     Active Substance: DROSPIRENONE\ETHINYL ESTRADIOL
     Dosage: 1 DF, QD
     Route: 048
     Dates: start: 20240604
  15. TRIAMCINOLONE [Concomitant]
     Active Substance: TRIAMCINOLONE
     Dosage: UNK
     Route: 061
     Dates: start: 20240227
  16. ZENATANE [Concomitant]
     Active Substance: ISOTRETINOIN
     Dosage: 30 MG
     Dates: start: 20240605
  17. ACCUTANE [Concomitant]
     Active Substance: ISOTRETINOIN

REACTIONS (2)
  - Abnormal uterine bleeding [Not Recovered/Not Resolved]
  - Product monitoring error [None]

NARRATIVE: CASE EVENT DATE: 20240101
